FAERS Safety Report 10221781 (Version 2)
Quarter: 2014Q2

REPORT INFORMATION
  Report Type: Spontaneous
  Country: AR (occurrence: AR)
  Receive Date: 20140606
  Receipt Date: 20140606
  Transmission Date: 20141212
  Serious: No
  Sender: FDA-Public Use
  Company Number: AR-BIOMARINAP-AR-2013-101103

PATIENT
  Age: 4 Year
  Sex: Male

DRUGS (1)
  1. NAGLAZYME [Suspect]
     Indication: MUCOPOLYSACCHARIDOSIS VI
     Dosage: 15 MG, QW
     Route: 041
     Dates: start: 20120724

REACTIONS (1)
  - Varicella [Recovering/Resolving]
